FAERS Safety Report 8308724-0 (Version None)
Quarter: 2012Q2

REPORT INFORMATION
  Report Type: 
  Country: None (occurrence: None)
  Receive Date: 20120424
  Receipt Date: 20120409
  Transmission Date: 20120825
  Serious: Yes (Hospitalization, Other)
  Sender: FDA-Public Use
  Company Number: US-ASTELLAS-2012US004134

PATIENT
  Age: 68 Year
  Sex: Male

DRUGS (4)
  1. ERLOTINIB HYDROCHLORIDE [Suspect]
     Dosage: 150 MG, UID/QD
     Route: 048
  2. ERLOTINIB HYDROCHLORIDE [Suspect]
     Dosage: UNK
     Route: 048
  3. ERLOTINIB HYDROCHLORIDE [Suspect]
     Dosage: UNK
     Route: 048
  4. ERLOTINIB HYDROCHLORIDE [Suspect]
     Indication: NON-SMALL CELL LUNG CANCER
     Dosage: 125 MG, UID/QD
     Route: 048

REACTIONS (4)
  - INCORRECT DOSE ADMINISTERED [None]
  - HERPES ZOSTER [None]
  - NEUTROPENIA [None]
  - STEVENS-JOHNSON SYNDROME [None]
